FAERS Safety Report 8508103-7 (Version None)
Quarter: 2012Q3

REPORT INFORMATION
  Report Type: 
  Country: None (occurrence: None)
  Receive Date: 20120713
  Receipt Date: 20120706
  Transmission Date: 20120928
  Serious: Yes (Hospitalization)
  Sender: FDA-Public Use
  Company Number: FR-SANOFI-AVENTIS-2012SA048131

PATIENT
  Age: 55 Year
  Sex: Female

DRUGS (12)
  1. LOVENOX [Suspect]
     Indication: DEEP VEIN THROMBOSIS
     Route: 058
     Dates: start: 20120515
  2. PROPRANOLOL [Concomitant]
     Route: 048
  3. TAZOBACTAM [Concomitant]
     Dates: end: 20120531
  4. TRAMADOL HCL [Suspect]
     Route: 048
     Dates: start: 20120515
  5. PERINDOPRIL ERBUMINE [Suspect]
     Route: 048
     Dates: start: 20120601, end: 20120606
  6. AMIKACIN [Concomitant]
     Dates: end: 20120526
  7. NICARDIPINE HCL [Suspect]
     Route: 048
     Dates: start: 20120515
  8. GENERAL NUTRIENTS [Concomitant]
     Dates: start: 20120515
  9. ACETAMINOPHEN [Suspect]
     Dosage: 3 TO 4 DF DAILY
     Route: 042
     Dates: start: 20120515
  10. CRESTOR [Concomitant]
     Route: 048
  11. LEVOCARNIL [Concomitant]
     Route: 042
     Dates: start: 20120531
  12. VIT K ANTAGONISTS [Concomitant]
     Indication: PHLEBITIS
     Route: 048

REACTIONS (1)
  - AGRANULOCYTOSIS [None]
